FAERS Safety Report 6834682-1 (Version None)
Quarter: 2010Q3

REPORT INFORMATION
  Report Type: 
  Country: None (occurrence: None)
  Receive Date: 20100712
  Receipt Date: 20070702
  Transmission Date: 20110219
  Serious: No
  Sender: FDA-Public Use
  Company Number: US-PFIZER INC-2007027078

PATIENT
  Sex: Female
  Weight: 92.1 kg

DRUGS (12)
  1. CHANTIX [Suspect]
     Indication: SMOKING CESSATION THERAPY
     Route: 048
     Dates: start: 20070322
  2. DOXEPIN HCL [Interacting]
  3. ZYPREXA [Interacting]
  4. HYDROCHLOROTHIAZIDE [Concomitant]
  5. METOPROLOL [Concomitant]
  6. SINEQUAN [Concomitant]
  7. CLONAZEPAM [Concomitant]
  8. LIPITOR [Concomitant]
  9. LEVOTHROID [Concomitant]
  10. IBUPROFEN [Concomitant]
  11. STOOL SOFTENER [Concomitant]
  12. ADVAIR DISKUS 100/50 [Concomitant]

REACTIONS (3)
  - DIZZINESS [None]
  - DRUG INTERACTION [None]
  - MUSCLE TWITCHING [None]
